FAERS Safety Report 6272413-7 (Version None)
Quarter: 2009Q3

REPORT INFORMATION
  Report Type: 
  Country: None (occurrence: None)
  Receive Date: 20090717
  Receipt Date: 20090706
  Transmission Date: 20100115
  Serious: Yes (Death)
  Sender: FDA-Public Use
  Company Number: GB-MERCK-0904GBR00082

PATIENT
  Age: 36 Year
  Sex: Male
  Weight: 56 kg

DRUGS (5)
  1. CANCIDAS [Suspect]
     Indication: FUNGAL INFECTION
     Route: 051
     Dates: start: 20071207
  2. VORICONAZOLE [Concomitant]
     Indication: FUNGAL INFECTION
     Route: 065
     Dates: start: 20071205
  3. PREDNISOLONE [Concomitant]
     Indication: IMMUNOSUPPRESSION
     Route: 065
  4. TACROLIMUS [Concomitant]
     Indication: IMMUNOSUPPRESSION
     Route: 065
     Dates: start: 20070614
  5. MYCOPHENOLATE MOFETIL [Concomitant]
     Indication: IMMUNOSUPPRESSION
     Route: 065

REACTIONS (2)
  - DRUG RESISTANCE [None]
  - FUNGAL INFECTION [None]
